FAERS Safety Report 8206997-6 (Version None)
Quarter: 2012Q1

REPORT INFORMATION
  Report Type: 
  Country: None (occurrence: None)
  Receive Date: 20120314
  Receipt Date: 20120305
  Transmission Date: 20120608
  Serious: Yes (Hospitalization)
  Sender: FDA-Public Use
  Company Number: NZ-SANOFI-AVENTIS-2012SA015086

PATIENT
  Age: 51 Year
  Sex: Male

DRUGS (7)
  1. LANTUS [Suspect]
     Dosage: DOSE:20 UNIT(S)
     Route: 065
  2. LANTUS [Suspect]
     Dosage: 10 IU AT 09:00 HOURS AND 10 IU AT 21:00 HOURS
     Route: 065
  3. NOVORAPID [Concomitant]
     Dosage: DOSE: 6: 4: 10
  4. NOVORAPID [Concomitant]
     Dosage: 2 UNIT INCREMENT
  5. METFORMIN HCL [Concomitant]
  6. NOVORAPID [Concomitant]
     Dosage: DOSE: 6: 4: 11
  7. NOVORAPID [Concomitant]
     Dosage: DOSE: 6:4:8

REACTIONS (4)
  - HYPOGLYCAEMIA [None]
  - DRUG ADMINISTRATION ERROR [None]
  - BLOOD GLUCOSE INCREASED [None]
  - CHEST PAIN [None]
